FAERS Safety Report 6678730-0 (Version None)
Quarter: 2010Q2

REPORT INFORMATION
  Report Type: 
  Country: None (occurrence: None)
  Receive Date: 20100413
  Receipt Date: 20100401
  Transmission Date: 20101027
  Serious: Yes (Death)
  Sender: FDA-Public Use
  Company Number: JP-PFIZER INC-2010029982

PATIENT
  Age: 54 Year
  Sex: Female
  Weight: 65 kg

DRUGS (12)
  1. FARMORUBICIN [Suspect]
     Indication: BREAST CANCER RECURRENT
     Dosage: 97.2 MG, UNK
     Route: 042
     Dates: start: 20100204
  2. CYCLOPHOSPHAMIDE [Concomitant]
     Indication: BREAST CANCER RECURRENT
     Dosage: 972 MG
     Route: 042
     Dates: start: 20100204
  3. BENZALIN [Concomitant]
  4. ZOPICLONE [Concomitant]
  5. SENNOSIDE A+B CALCIUM [Concomitant]
  6. CANDESARTAN CILEXETIL [Concomitant]
  7. RISPERDAL [Concomitant]
  8. SEROQUEL [Concomitant]
  9. CALCIUM CARBONATE [Concomitant]
  10. OSTEN [Concomitant]
  11. ONE-ALPHA [Concomitant]
  12. ALENDRONATE SODIUM [Concomitant]

REACTIONS (1)
  - DEATH [None]
